FAERS Safety Report 25841892 (Version 3)
Quarter: 2025Q4

REPORT INFORMATION
  Report Type: Spontaneous
  Country: US (occurrence: US)
  Receive Date: 20250924
  Receipt Date: 20251015
  Transmission Date: 20260118
  Serious: No
  Sender: PFIZER
  Company Number: US-PFIZER INC-202500041828

PATIENT
  Age: 14 Year
  Sex: Male
  Weight: 41.5 kg

DRUGS (3)
  1. GENOTROPIN [Suspect]
     Active Substance: SOMATROPIN
     Indication: Growth hormone deficiency
     Dosage: 1.8 MG/DAY 6 DAYS/WEEK (DOSE IN INCREMENTS OF 0.2 MG)
     Route: 058
  2. GENOTROPIN [Suspect]
     Active Substance: SOMATROPIN
     Dosage: 2.0 MG/DAY 6 DAYS/WEEK (DOSE IN INCREMENTS OF 0.2 MG)
     Route: 058
     Dates: start: 20240510
  3. GENOTROPIN [Suspect]
     Active Substance: SOMATROPIN
     Dosage: 2.2 MG/DAY 6 DAYS/WEEK (DOSE IN INCREMENTS OF 0.2 MG)
     Route: 058

REACTIONS (1)
  - Device malfunction [Unknown]
